FAERS Safety Report 21520487 (Version 1)
Quarter: 2022Q4

REPORT INFORMATION
  Report Type: Spontaneous
  Country: US (occurrence: None)
  Receive Date: 20221027
  Receipt Date: 20221027
  Transmission Date: 20230113
  Serious: Yes (Life-Threatening)
  Sender: FDA-Public Use
  Company Number: None

PATIENT
  Age: 58 Year
  Sex: Female
  Weight: 45.36 kg

DRUGS (1)
  1. TYMLOS [Suspect]
     Active Substance: ABALOPARATIDE
     Indication: Product used for unknown indication
     Dosage: FREQUENCY : DAILY;?
     Route: 058

REACTIONS (6)
  - Hypotension [None]
  - Headache [None]
  - Muscular weakness [None]
  - Hypoaesthesia [None]
  - Vision blurred [None]
  - Tinnitus [None]

NARRATIVE: CASE EVENT DATE: 20220705
